FAERS Safety Report 8271923-0 (Version None)
Quarter: 2012Q1

REPORT INFORMATION
  Report Type: 
  Country: None (occurrence: None)
  Receive Date: 20120312
  Receipt Date: 20111209
  Transmission Date: 20120608
  Serious: No
  Sender: FDA-Public Use
  Company Number: 2011SP057702

PATIENT
  Sex: Male

DRUGS (1)
  1. SAPHRIS [Suspect]
     Indication: SCHIZOPHRENIA

REACTIONS (2)
  - MOVEMENT DISORDER [None]
  - MUSCLE SPASMS [None]
